FAERS Safety Report 7271746-5 (Version None)
Quarter: 2011Q1

REPORT INFORMATION
  Report Type: 
  Country: None (occurrence: None)
  Receive Date: 20110203
  Receipt Date: 20110201
  Transmission Date: 20110831
  Serious: Yes (Death, Hospitalization)
  Sender: FDA-Public Use
  Company Number: JP-SANOFI-AVENTIS-2010SA070479

PATIENT
  Age: 69 Year
  Sex: Male
  Weight: 52.7 kg

DRUGS (5)
  1. TAXOTERE [Suspect]
     Indication: PROSTATE CANCER
     Route: 041
     Dates: start: 20101012, end: 20101012
  2. DECADRON [Concomitant]
     Route: 048
     Dates: start: 20100826, end: 20101021
  3. TAXOTERE [Suspect]
     Route: 041
     Dates: start: 20100913, end: 20100913
  4. ZOLADEX [Concomitant]
     Dates: start: 20090301
  5. ODYNE [Concomitant]
     Dates: start: 20090301

REACTIONS (3)
  - RESPIRATORY FAILURE [None]
  - FEBRILE NEUTROPENIA [None]
  - INTERSTITIAL LUNG DISEASE [None]
